FAERS Safety Report 10230568 (Version 4)
Quarter: 2014Q4

REPORT INFORMATION
  Report Type: Spontaneous
  Country: US (occurrence: US)
  Receive Date: 20140611
  Receipt Date: 20141211
  Transmission Date: 20150528
  Serious: Yes (Other)
  Sender: FDA-Public Use
  Company Number: US-INCYTE CORPORATION-2014IN001008

PATIENT
  Age: 76 Year
  Sex: Female
  Weight: 70.29 kg

DRUGS (7)
  1. CALCIUM                            /00060701/ [Concomitant]
     Active Substance: CALCIUM
  2. MULTIVITAMIN                       /07504101/ [Concomitant]
     Active Substance: VITAMINS
  3. JAKAFI [Suspect]
     Active Substance: RUXOLITINIB
     Dosage: 5 MG, QD
     Route: 048
     Dates: start: 20140403
  4. PROCRIT [Concomitant]
     Active Substance: ERYTHROPOIETIN
     Dosage: 60K UNITS A WEEK
  5. ZINC [Concomitant]
     Active Substance: ZINC\ZINC CHLORIDE
  6. JAKAFI [Suspect]
     Active Substance: RUXOLITINIB
     Indication: MYELOFIBROSIS
     Dosage: 5 MG, BID
     Route: 048
     Dates: start: 20140317, end: 20140402
  7. MAGNESIUM [Concomitant]
     Active Substance: MAGNESIUM

REACTIONS (10)
  - Diarrhoea [Unknown]
  - Weight increased [Unknown]
  - Haematocrit decreased [Not Recovered/Not Resolved]
  - Contusion [Not Recovered/Not Resolved]
  - Blood count abnormal [Not Recovered/Not Resolved]
  - Red blood cell count decreased [Not Recovered/Not Resolved]
  - Asthenia [Not Recovered/Not Resolved]
  - Platelet count decreased [Not Recovered/Not Resolved]
  - Haemoglobin decreased [Unknown]
  - Anaemia [Not Recovered/Not Resolved]

NARRATIVE: CASE EVENT DATE: 2014
